FAERS Safety Report 25307301 (Version 1)
Quarter: 2025Q2

REPORT INFORMATION
  Report Type: Spontaneous
  Country: US (occurrence: US)
  Receive Date: 20250513
  Receipt Date: 20250513
  Transmission Date: 20250717
  Serious: Yes (Hospitalization, Congenital Anomaly, Other)
  Sender: FRESENIUS KABI
  Company Number: US-FreseniusKabi-FK202506869

PATIENT
  Sex: Female

DRUGS (4)
  1. LETROZOLE [Suspect]
     Active Substance: LETROZOLE
     Indication: Foetal exposure during pregnancy
     Route: 064
  2. RIBOCICLIB [Concomitant]
     Active Substance: RIBOCICLIB
     Indication: Product used for unknown indication
     Route: 064
  3. DENOSUMAB [Concomitant]
     Active Substance: DENOSUMAB
     Indication: Product used for unknown indication
     Route: 064
  4. LEUPROLIDE [Concomitant]
     Active Substance: LEUPROLIDE
     Indication: Product used for unknown indication
     Route: 064

REACTIONS (2)
  - Virilism foetal [Recovering/Resolving]
  - Foetal exposure during pregnancy [Unknown]
